FAERS Safety Report 24589011 (Version 1)
Quarter: 2024Q4

REPORT INFORMATION
  Report Type: Report from Study
  Country: US (occurrence: US)
  Receive Date: 20241107
  Receipt Date: 20241107
  Transmission Date: 20250115
  Serious: Yes (Other)
  Sender: ABBVIE
  Company Number: US-ABBVIE-5990617

PATIENT
  Age: 38 Year
  Sex: Female

DRUGS (1)
  1. SKYRIZI [Suspect]
     Active Substance: RISANKIZUMAB-RZAA
     Indication: Psoriasis
     Route: 058
     Dates: start: 202103

REACTIONS (5)
  - Intestinal obstruction [Unknown]
  - Anal fistula [Unknown]
  - Intestinal obstruction [Recovered/Resolved]
  - Intestinal stenosis [Unknown]
  - Anal abscess [Unknown]

NARRATIVE: CASE EVENT DATE: 20241001
